APPROVED DRUG PRODUCT: DEFERASIROX
Active Ingredient: DEFERASIROX
Strength: 90MG
Dosage Form/Route: TABLET;ORAL
Application: A210727 | Product #001
Applicant: JEROME STEVENS PHARMACEUTICALS INC
Approved: Dec 27, 2019 | RLD: No | RS: No | Type: DISCN